FAERS Safety Report 16946114 (Version 3)
Quarter: 2019Q4

REPORT INFORMATION
  Report Type: Spontaneous
  Country: US (occurrence: US)
  Receive Date: 20191022
  Receipt Date: 20191031
  Transmission Date: 20200122
  Serious: Yes (Other)
  Sender: FDA-Public Use
  Company Number: US-PFIZER INC-2016512747

PATIENT
  Age: 47 Year
  Sex: Female

DRUGS (3)
  1. CELEBREX [Concomitant]
     Active Substance: CELECOXIB
     Indication: LUMBAR RADICULOPATHY
     Dosage: 200 MG, 2X/DAY
     Route: 048
  2. LYRICA [Suspect]
     Active Substance: PREGABALIN
     Dosage: 75 MG, (1 CAPSULE BY MOUTH EVERY 4 HOURS)
     Route: 048
  3. LYRICA [Suspect]
     Active Substance: PREGABALIN
     Indication: LUMBAR RADICULOPATHY
     Dosage: 75 MG, 6 TIMES A DAY, (1 TAB PER ORAL 6 TIMES PER DAY/ EVERY 4 HOURS)
     Route: 048

REACTIONS (5)
  - Drug ineffective [Unknown]
  - Seizure [Unknown]
  - Road traffic accident [Unknown]
  - Weight increased [Unknown]
  - Peripheral swelling [Unknown]
